FAERS Safety Report 6325191-7 (Version None)
Quarter: 2009Q3

REPORT INFORMATION
  Report Type: 
  Country: None (occurrence: None)
  Receive Date: 20090824
  Receipt Date: 20090630
  Transmission Date: 20100115
  Serious: No
  Sender: FDA-Public Use
  Company Number: US-ABBOTT-09P-163-0583026-00

PATIENT
  Sex: Female
  Weight: 88.53 kg

DRUGS (6)
  1. NIASPAN [Suspect]
     Indication: HYPERCHOLESTEROLAEMIA
     Dosage: 2 NIGHTS OF SKIPPED MEDICATION; WILL BE INCREASING TO 1000 MG QHS
     Route: 048
     Dates: start: 20090501
  2. PLAVIX [Concomitant]
     Indication: TRANSIENT ISCHAEMIC ATTACK
  3. ZOCOR [Concomitant]
     Indication: BLOOD CHOLESTEROL
  4. DIOVAN [Concomitant]
     Indication: HYPERTENSION
  5. LESCOL XL [Concomitant]
     Indication: DRUG USE FOR UNKNOWN INDICATION
     Route: 048
  6. MULTI-VITAMINS [Concomitant]
     Indication: DRUG USE FOR UNKNOWN INDICATION
     Route: 048

REACTIONS (3)
  - DRUG DOSE OMISSION [None]
  - FLUSHING [None]
  - NAUSEA [None]
